FAERS Safety Report 22520748 (Version 3)
Quarter: 2023Q4

REPORT INFORMATION
  Report Type: Spontaneous
  Country: US (occurrence: US)
  Receive Date: 20230605
  Receipt Date: 20231002
  Transmission Date: 20240109
  Serious: Yes (Hospitalization)
  Sender: FDA-Public Use
  Company Number: US-PFIZER INC-PV202300097263

PATIENT
  Age: 79 Year
  Sex: Female

DRUGS (1)
  1. RUXIENCE [Suspect]
     Active Substance: RITUXIMAB-PVVR
     Dosage: UNK

REACTIONS (4)
  - Bone cancer [Unknown]
  - Vision blurred [Unknown]
  - Amnesia [Unknown]
  - Balance disorder [Unknown]
